FAERS Safety Report 19730438 (Version 4)
Quarter: 2022Q4

REPORT INFORMATION
  Report Type: Spontaneous
  Country: GB (occurrence: GB)
  Receive Date: 20210820
  Receipt Date: 20221217
  Transmission Date: 20230113
  Serious: Yes (Other)
  Sender: FDA-Public Use
  Company Number: NVSC2021GB182331

PATIENT
  Age: 73 Year
  Sex: Female
  Weight: 50.2 kg

DRUGS (53)
  1. ALLOPURINOL [Suspect]
     Active Substance: ALLOPURINOL
     Indication: Product used for unknown indication
     Dosage: 30 MG, QD
     Route: 065
     Dates: start: 20171104, end: 20171120
  2. ALLOPURINOL [Suspect]
     Active Substance: ALLOPURINOL
     Dosage: 300 MG, QD
     Route: 065
     Dates: start: 20171104, end: 20171120
  3. ALLOPURINOL [Suspect]
     Active Substance: ALLOPURINOL
     Dosage: 120 MG
     Route: 065
  4. ALLOPURINOL [Suspect]
     Active Substance: ALLOPURINOL
     Dosage: 300 MG, QD
     Route: 065
     Dates: start: 20171120
  5. DEXAMETHASONE [Suspect]
     Active Substance: DEXAMETHASONE
     Indication: Product used for unknown indication
     Dosage: 20 MG, QD
     Route: 065
     Dates: start: 20171102, end: 20171106
  6. DEXAMETHASONE [Suspect]
     Active Substance: DEXAMETHASONE
     Dosage: 20 MG, QD
     Route: 065
  7. DEXAMETHASONE [Suspect]
     Active Substance: DEXAMETHASONE
     Dosage: 100 MG
     Route: 065
  8. OMEPRAZOLE [Suspect]
     Active Substance: OMEPRAZOLE
     Indication: Product used for unknown indication
     Dosage: 20 MG, QD (EVERY MORNING)
     Route: 048
  9. OMEPRAZOLE [Suspect]
     Active Substance: OMEPRAZOLE
     Dosage: 10 MG, QD
     Route: 048
  10. RAMIPRIL [Suspect]
     Active Substance: RAMIPRIL
     Indication: Product used for unknown indication
     Dosage: 10 MG, QD (EVERY MORNING)
     Route: 065
  11. RAMIPRIL [Suspect]
     Active Substance: RAMIPRIL
     Dosage: 10 MG
     Route: 048
  12. FENTANYL [Suspect]
     Active Substance: FENTANYL
     Indication: Product used for unknown indication
     Dosage: UNK, QH
     Route: 062
     Dates: start: 20171108
  13. MELPHALAN [Suspect]
     Active Substance: MELPHALAN
     Indication: Plasma cell leukaemia
     Dosage: 14 MG, QD
     Route: 065
     Dates: start: 20171103, end: 20171103
  14. MELPHALAN [Suspect]
     Active Substance: MELPHALAN
     Dosage: 14 MG, QD (VMP REGIMEN, DAY 1 TO 4, CYCLE 2)
     Route: 065
     Dates: start: 20171103, end: 20171106
  15. MELPHALAN [Suspect]
     Active Substance: MELPHALAN
     Dosage: 42 MG
     Route: 065
     Dates: start: 20171103, end: 20171106
  16. MELPHALAN [Suspect]
     Active Substance: MELPHALAN
     Dosage: 56 MG
     Route: 065
     Dates: start: 20171106, end: 20171106
  17. MELPHALAN [Suspect]
     Active Substance: MELPHALAN
     Dosage: 14 MG
     Route: 065
     Dates: start: 20171106, end: 20171106
  18. MELPHALAN [Suspect]
     Active Substance: MELPHALAN
     Dosage: 70 MG
     Route: 065
     Dates: start: 201711, end: 20171107
  19. MELPHALAN [Suspect]
     Active Substance: MELPHALAN
     Dosage: 14 MG
     Route: 065
     Dates: start: 20171107, end: 20171110
  20. MELPHALAN [Suspect]
     Active Substance: MELPHALAN
     Dosage: 70 MG
     Route: 065
     Dates: start: 20171110, end: 20171114
  21. MELPHALAN [Suspect]
     Active Substance: MELPHALAN
     Dosage: 266 MG
     Route: 065
  22. PREDNISONE [Suspect]
     Active Substance: PREDNISONE
     Indication: Plasma cell leukaemia
     Dosage: 70 MG, QD
     Route: 065
     Dates: start: 20171103, end: 20171103
  23. PREDNISONE [Suspect]
     Active Substance: PREDNISONE
     Dosage: 70 MG, QD
     Route: 065
     Dates: start: 20171103, end: 20171106
  24. PREDNISONE [Suspect]
     Active Substance: PREDNISONE
     Dosage: 70 MG, QD
     Route: 065
     Dates: start: 20171106, end: 20171106
  25. PREDNISONE [Suspect]
     Active Substance: PREDNISONE
     Dosage: 1 DF, CYCLICAL
     Route: 065
  26. SODIUM CHLORIDE [Suspect]
     Active Substance: SODIUM CHLORIDE
     Indication: Medication dilution
     Dosage: UNK, (0.9 %; SOLUTION FOR INFUSION DAY 1 OF CYCLE 2, VMP REGIMEN, COMPOUNDED WITH BORTEZOMIB)
     Route: 042
     Dates: start: 20171103, end: 20171103
  27. SODIUM CHLORIDE [Suspect]
     Active Substance: SODIUM CHLORIDE
     Dosage: UNK, (0.9 %; SOLUTION FOR INFUSION DAY 1 OF CYCLE 2, VMP REGIMEN, COMPOUNDED WITH BORTEZOMIB)
     Route: 042
     Dates: start: 20171106, end: 20171106
  28. SODIUM CHLORIDE [Suspect]
     Active Substance: SODIUM CHLORIDE
     Dosage: UNK
     Route: 042
     Dates: start: 20171106, end: 20171106
  29. SODIUM CHLORIDE [Suspect]
     Active Substance: SODIUM CHLORIDE
     Dosage: UNK
     Route: 042
     Dates: start: 20171107, end: 201711
  30. SODIUM CHLORIDE [Suspect]
     Active Substance: SODIUM CHLORIDE
     Dosage: UNK, (0.9 %; SOLUTION FOR INFUSION DAY 1 OF CYCLE 2, VMP REGIMEN, COMPOUNDED WITH BORTEZOMIB)
     Route: 042
     Dates: start: 20171110, end: 20171110
  31. SODIUM CHLORIDE [Suspect]
     Active Substance: SODIUM CHLORIDE
     Dosage: UNK
     Route: 042
     Dates: start: 20171110, end: 20171114
  32. SODIUM CHLORIDE [Suspect]
     Active Substance: SODIUM CHLORIDE
     Dosage: UNK
     Route: 065
  33. VELCADE [Suspect]
     Active Substance: BORTEZOMIB
     Indication: Plasma cell leukaemia
     Dosage: 1.8 MG/M2
     Route: 058
     Dates: start: 20171103, end: 20171103
  34. VELCADE [Suspect]
     Active Substance: BORTEZOMIB
     Dosage: 1.3 MG/M2 (DOSAGE FORM: LYOPHILIZED POWDER, ON DAYS 1, 4, 8, 11, 22, 25, 29, 32, DAY 1 OF CYCLE 2; D
     Route: 058
     Dates: start: 20171103, end: 20171103
  35. VELCADE [Suspect]
     Active Substance: BORTEZOMIB
     Dosage: 1.3 MG/M2 (DOSAGE FORM: LYOPHILIZED POWDER, DAY 4 OF CYCLE 2, DOSE AS 2 MG, COMPOUNDED WITH SODIUM C
     Route: 058
     Dates: start: 20171106, end: 20171106
  36. VELCADE [Suspect]
     Active Substance: BORTEZOMIB
     Dosage: 1.8 MG/M2
     Route: 058
     Dates: start: 20171107, end: 201711
  37. VELCADE [Suspect]
     Active Substance: BORTEZOMIB
     Dosage: 1.3 MG/M2 (DOSAGE FORM: LYOPHILIZED POWDER, DAY 8 OF CYCLE 2, DOSE: 2 MG, COMPOUNDED WITH SODIUM CHL
     Route: 058
     Dates: start: 20171110, end: 20171110
  38. VELCADE [Suspect]
     Active Substance: BORTEZOMIB
     Dosage: 1.8 MG/M2
     Route: 058
     Dates: start: 20171110, end: 20171114
  39. VELCADE [Suspect]
     Active Substance: BORTEZOMIB
     Dosage: 2 MG/M2
     Route: 058
  40. DURAGESIC [Suspect]
     Active Substance: FENTANYL
     Indication: Product used for unknown indication
     Dosage: 12 MG, QH
     Route: 062
     Dates: start: 20171108
  41. BENDROFLUMETHIAZIDE [Suspect]
     Active Substance: BENDROFLUMETHIAZIDE
     Indication: Product used for unknown indication
     Dosage: 2.5 MG, QD (EVERY MORNING)
     Route: 065
     Dates: start: 20171103, end: 20171103
  42. BENDROFLUMETHIAZIDE [Suspect]
     Active Substance: BENDROFLUMETHIAZIDE
     Dosage: 3 MG, QD
     Route: 065
     Dates: start: 20171107, end: 201711
  43. BENDROFLUMETHIAZIDE [Suspect]
     Active Substance: BENDROFLUMETHIAZIDE
     Dosage: 2.5 MG, QD
     Route: 065
  44. BENDROFLUMETHIAZIDE [Suspect]
     Active Substance: BENDROFLUMETHIAZIDE
     Dosage: 2 MG
     Route: 065
     Dates: start: 20171107, end: 201711
  45. BENDROFLUMETHIAZIDE [Suspect]
     Active Substance: BENDROFLUMETHIAZIDE
     Dosage: 10 MG, QD
     Route: 065
  46. BENDROFLUMETHIAZIDE [Suspect]
     Active Substance: BENDROFLUMETHIAZIDE
     Dosage: 2 MG
     Route: 065
     Dates: start: 20171110, end: 20171114
  47. BENDROFLUMETHIAZIDE [Suspect]
     Active Substance: BENDROFLUMETHIAZIDE
     Dosage: 6 MG
     Route: 065
  48. BENDROFLUMETHIAZIDE [Suspect]
     Active Substance: BENDROFLUMETHIAZIDE
     Dosage: 1.8 MG
     Route: 065
  49. METOCLOPRAMIDE [Suspect]
     Active Substance: METOCLOPRAMIDE
     Indication: Product used for unknown indication
     Dosage: 10 MG, PRN (QDS PRN)
     Route: 065
  50. METOCLOPRAMIDE [Suspect]
     Active Substance: METOCLOPRAMIDE
     Dosage: 10 MG, QD
     Route: 065
  51. METOCLOPRAMIDE [Suspect]
     Active Substance: METOCLOPRAMIDE
     Dosage: 20 MG, QD
     Route: 065
  52. SERTRALINE [Suspect]
     Active Substance: SERTRALINE HYDROCHLORIDE
     Indication: Product used for unknown indication
     Dosage: 50 MG, QD (EVERY MORNING)
     Route: 065
  53. FENTANYL CITRATE [Suspect]
     Active Substance: FENTANYL CITRATE
     Indication: Product used for unknown indication
     Dosage: 12 MG
     Route: 055
     Dates: start: 20171108

REACTIONS (14)
  - Abnormal behaviour [Recovered/Resolved]
  - Emotional distress [Not Recovered/Not Resolved]
  - Disturbance in social behaviour [Recovered/Resolved]
  - Paranoia [Recovered/Resolved]
  - Agitation [Recovered/Resolved]
  - Disorientation [Recovered/Resolved]
  - Confusional state [Recovered/Resolved]
  - Hallucination [Recovered/Resolved]
  - Off label use [Unknown]
  - Product use in unapproved indication [Unknown]
  - Drug abuse [Unknown]
  - Medication error [Unknown]
  - Incorrect route of product administration [Unknown]
  - Intentional product misuse [Unknown]

NARRATIVE: CASE EVENT DATE: 20171107
